FAERS Safety Report 12959720 (Version 1)
Quarter: 2016Q4

REPORT INFORMATION
  Report Type: Spontaneous
  Country: US (occurrence: US)
  Receive Date: 20161121
  Receipt Date: 20161121
  Transmission Date: 20170207
  Serious: No
  Sender: FDA-Public Use
  Company Number: US-JNJFOC-20161006855

PATIENT
  Age: 38 Year
  Sex: Female
  Weight: 77.11 kg

DRUGS (2)
  1. CHILDRENS MOTRIN [Suspect]
     Active Substance: IBUPROFEN
     Route: 048
  2. CHILDRENS MOTRIN [Suspect]
     Active Substance: IBUPROFEN
     Indication: PRODUCT USED FOR UNKNOWN INDICATION
     Dosage: TOOK LESS THAN A 1/4 TSP OF PRODUCT 1 TIME
     Route: 048
     Dates: start: 20161007, end: 20161007

REACTIONS (4)
  - Throat irritation [Recovered/Resolved]
  - Drug administered to patient of inappropriate age [Unknown]
  - Cough [Recovered/Resolved]
  - Intentional product misuse [Unknown]

NARRATIVE: CASE EVENT DATE: 20161007
